FAERS Safety Report 14956997 (Version 1)
Quarter: 2018Q2

REPORT INFORMATION
  Report Type: Spontaneous
  Country: US (occurrence: US)
  Receive Date: 20180509
  Receipt Date: 20180509
  Transmission Date: 20180711
  Serious: No
  Sender: FDA-Public Use
  Company Number: None

PATIENT
  Age: 47 Year
  Sex: Female

DRUGS (1)
  1. BOTOX [Suspect]
     Active Substance: ONABOTULINUMTOXINA

REACTIONS (6)
  - Urinary tract infection [None]
  - Pneumonia [None]
  - General physical health deterioration [None]
  - Coma [None]
  - Hypokalaemia [None]
  - Blood iron decreased [None]

NARRATIVE: CASE EVENT DATE: 20170301
